FAERS Safety Report 5781523-X (Version None)
Quarter: 2008Q2

REPORT INFORMATION
  Report Type: 
  Country: None (occurrence: None)
  Receive Date: 20080619
  Receipt Date: 20080523
  Transmission Date: 20081010
  Serious: No
  Sender: FDA-Public Use
  Company Number: ADE# 08-077

PATIENT

DRUGS (1)
  1. EXTENDED PHENTOIN SODIUM CAPSULES, USP, 100MG [Suspect]

REACTIONS (1)
  - ADVERSE EVENT [None]
